FAERS Safety Report 20161346 (Version 4)
Quarter: 2022Q3

REPORT INFORMATION
  Report Type: Spontaneous
  Country: US (occurrence: US)
  Receive Date: 20211208
  Receipt Date: 20220729
  Transmission Date: 20221026
  Serious: Yes (Hospitalization, Other)
  Sender: FDA-Public Use
  Company Number: US-PFIZER INC-202101711574

PATIENT
  Age: 86 Year
  Sex: Female
  Weight: 54.43 kg

DRUGS (3)
  1. VYNDAMAX [Suspect]
     Active Substance: TAFAMIDIS
     Indication: Heart rate decreased
     Dosage: 61 MG, 1X/DAY
  2. VYNDAMAX [Suspect]
     Active Substance: TAFAMIDIS
     Indication: Hypersomnia
  3. VYNDAMAX [Suspect]
     Active Substance: TAFAMIDIS
     Indication: Asthenia

REACTIONS (6)
  - Dementia [Unknown]
  - Cardiac amyloidosis [Unknown]
  - Peripheral swelling [Unknown]
  - Gait disturbance [Unknown]
  - Weight increased [Unknown]
  - Off label use [Unknown]
